FAERS Safety Report 16283835 (Version 2)
Quarter: 2019Q2

REPORT INFORMATION
  Report Type: Spontaneous
  Country: JP (occurrence: JP)
  Receive Date: 20190507
  Receipt Date: 20190513
  Transmission Date: 20190711
  Serious: Yes (Other)
  Sender: FDA-Public Use
  Company Number: JP-PFIZER INC-2019190804

PATIENT
  Age: 59 Year
  Sex: Male

DRUGS (2)
  1. OXALIPLATIN. [Suspect]
     Active Substance: OXALIPLATIN
     Indication: ADENOCARCINOMA
     Dosage: UNK, CYCLIC (THREE COURSES OF SYSTEMIC CHEMOTHERAPY)
  2. TS-1 [Suspect]
     Active Substance: GIMERACIL\OTERACIL\TEGAFUR
     Indication: ADENOCARCINOMA
     Dosage: UNK, CYCLIC (THREE COURSES OF SYSTEMIC CHEMOTHERAPY)

REACTIONS (2)
  - Platelet count decreased [Unknown]
  - Functional gastrointestinal disorder [Unknown]
